FAERS Safety Report 17907549 (Version 1)
Quarter: 2020Q2

REPORT INFORMATION
  Report Type: Spontaneous
  Country: US (occurrence: US)
  Receive Date: 20200617
  Receipt Date: 20200617
  Transmission Date: 20200714
  Serious: Yes (Hospitalization)
  Sender: FDA-Public Use
  Company Number: None

PATIENT
  Age: 51 Year
  Sex: Male

DRUGS (7)
  1. GABAPENTINE [Concomitant]
     Active Substance: GABAPENTIN
  2. METHYLPRED [Concomitant]
     Active Substance: METHYLPREDNISOLONE
  3. TIZANIDINE. [Concomitant]
     Active Substance: TIZANIDINE
  4. ENBREL [Suspect]
     Active Substance: ETANERCEPT
     Indication: RHEUMATOID ARTHRITIS
     Dosage: ?          OTHER FREQUENCY:EVERY 2 WEEKS;?
     Route: 058
     Dates: start: 20200114
  5. ALLOPURINOL. [Concomitant]
     Active Substance: ALLOPURINOL
  6. FLUOXETINE [Concomitant]
     Active Substance: FLUOXETINE HYDROCHLORIDE
  7. LISINOPRIL. [Concomitant]
     Active Substance: LISINOPRIL

REACTIONS (1)
  - Neck surgery [None]

NARRATIVE: CASE EVENT DATE: 20200611
